FAERS Safety Report 20050010 (Version 1)
Quarter: 2021Q4

REPORT INFORMATION
  Report Type: Spontaneous
  Country: IT (occurrence: IT)
  Receive Date: 20211109
  Receipt Date: 20211109
  Transmission Date: 20220304
  Serious: Yes (Hospitalization)
  Sender: FDA-Public Use
  Company Number: IT-MYLANLABS-2021M1081108

PATIENT
  Age: 27 Year
  Sex: Female

DRUGS (12)
  1. AMIODARONE [Suspect]
     Active Substance: AMIODARONE
     Indication: Ventricular arrhythmia
     Dosage: 900 MILLIGRAM, QD
     Route: 042
  2. MAGNESIUM SULFATE [Suspect]
     Active Substance: MAGNESIUM SULFATE
     Indication: Ventricular arrhythmia
     Dosage: 10 GRAM, QD
     Route: 042
  3. FUROSEMIDE [Concomitant]
     Active Substance: FUROSEMIDE
     Indication: Diuretic therapy
     Dosage: 240 MILLIGRAM, QD
     Route: 042
  4. SPIRONOLACTONE [Concomitant]
     Active Substance: SPIRONOLACTONE
     Indication: Diuretic therapy
     Dosage: 200 MILLIGRAM, QD
     Route: 042
  5. HEPARIN [Concomitant]
     Active Substance: HEPARIN SODIUM
     Indication: Congestive cardiomyopathy
     Dosage: INTRAVENOUS BOLUS OF 5000 UI FOLLOWED BY CONTINUOUS INFUSION OF 20000-40000 UI PER DAY
     Route: 042
  6. HEPARIN [Concomitant]
     Active Substance: HEPARIN SODIUM
     Indication: Thrombosis
  7. BISOPROLOL [Concomitant]
     Active Substance: BISOPROLOL
     Indication: Congestive cardiomyopathy
     Dosage: 1.25 MILLIGRAM, QD
     Route: 065
  8. BISOPROLOL [Concomitant]
     Active Substance: BISOPROLOL
     Indication: Thrombosis
  9. RAMIPRIL [Concomitant]
     Active Substance: RAMIPRIL
     Indication: Congestive cardiomyopathy
     Dosage: 2.5 MILLIGRAM, QD
     Route: 065
  10. RAMIPRIL [Concomitant]
     Active Substance: RAMIPRIL
     Indication: Thrombosis
  11. WARFARIN [Concomitant]
     Active Substance: WARFARIN
     Indication: Cardiac ventricular thrombosis
     Dosage: 5 MILLIGRAM, QD
     Route: 065
  12. FUROSEMIDE [Concomitant]
     Active Substance: FUROSEMIDE
     Indication: Diuretic therapy
     Dosage: 25 MILLIGRAM, TID, THREE TIMES A DAY
     Route: 048

REACTIONS (1)
  - Drug ineffective [Unknown]
